FAERS Safety Report 5474838-6 (Version None)
Quarter: 2007Q4

REPORT INFORMATION
  Report Type: 
  Country: None (occurrence: None)
  Receive Date: 20071002
  Receipt Date: 20070925
  Transmission Date: 20080405
  Serious: Yes (Other)
  Sender: FDA-Public Use
  Company Number: US-ASTRAZENECA-2007UW02300

PATIENT
  Age: 75 Year
  Sex: Female
  Weight: 67.1 kg

DRUGS (8)
  1. ARIMIDEX [Suspect]
     Indication: BREAST CANCER
     Dates: start: 20061001
  2. CRESTOR [Suspect]
     Route: 048
  3. ATACAND [Concomitant]
  4. PRAVACHOL [Concomitant]
  5. TUMS [Concomitant]
  6. ZOCOR [Concomitant]
  7. ZETIA [Concomitant]
  8. LOMOTIL [Concomitant]

REACTIONS (14)
  - ANXIETY [None]
  - BLOOD CHOLESTEROL INCREASED [None]
  - BREAST DISORDER [None]
  - DIARRHOEA [None]
  - ENDOMETRIAL HYPERTROPHY [None]
  - FEELING ABNORMAL [None]
  - HUNGER [None]
  - ILL-DEFINED DISORDER [None]
  - INCREASED APPETITE [None]
  - MALAISE [None]
  - PAIN IN EXTREMITY [None]
  - VAGINAL DISCHARGE [None]
  - VAGINAL HAEMORRHAGE [None]
  - WEIGHT INCREASED [None]
